FAERS Safety Report 7316636-4 (Version None)
Quarter: 2011Q1

REPORT INFORMATION
  Report Type: 
  Country: None (occurrence: None)
  Receive Date: 20110226
  Receipt Date: 20100721
  Transmission Date: 20110831
  Serious: No
  Sender: FDA-Public Use
  Company Number: US-ALLERGAN-1009474US

PATIENT
  Age: 73 Year
  Sex: Female

DRUGS (9)
  1. CENTRUM SILVER [Concomitant]
  2. JUVEDERM XC [Concomitant]
     Dosage: UNK
     Dates: start: 20100708, end: 20100708
  3. NURONTIN [Concomitant]
  4. B MULTIVITAMIN [Concomitant]
  5. ALLOPURINOL [Concomitant]
  6. HIGH BLOOD PRESSURE MEDICATION [Concomitant]
  7. ZYLOCAINE [Concomitant]
     Dosage: UNK
     Dates: start: 20100708, end: 20100708
  8. CITROCAL [Concomitant]
  9. BOTOX COSMETIC [Suspect]
     Indication: SKIN WRINKLING
     Dosage: UNK
     Route: 030
     Dates: start: 20100708, end: 20100708

REACTIONS (7)
  - SWELLING FACE [None]
  - EYELID OEDEMA [None]
  - URTICARIA [None]
  - PARAESTHESIA [None]
  - FEELING HOT [None]
  - MALAISE [None]
  - SKIN TIGHTNESS [None]
